FAERS Safety Report 15228274 (Version 1)
Quarter: 2018Q3

REPORT INFORMATION
  Report Type: Spontaneous
  Country: US (occurrence: US)
  Receive Date: 20180801
  Receipt Date: 20180801
  Transmission Date: 20181010
  Serious: Yes (Hospitalization)
  Sender: FDA-Public Use
  Company Number: US-MYLANLABS-2018M1056814

PATIENT
  Age: 35 Year
  Sex: Male

DRUGS (1)
  1. MALATHION. [Suspect]
     Active Substance: MALATHION
     Indication: PRODUCT USED FOR UNKNOWN INDICATION
     Route: 061

REACTIONS (14)
  - Emotional distress [Recovered/Resolved]
  - Toxicity to various agents [Recovered/Resolved]
  - Diarrhoea [Recovered/Resolved]
  - Lacrimation increased [Recovered/Resolved]
  - Abdominal pain [Recovered/Resolved]
  - Chemical poisoning [Recovered/Resolved]
  - Anxiety [Recovered/Resolved]
  - Miosis [Recovered/Resolved]
  - Blood pressure increased [Recovered/Resolved]
  - Hyperhidrosis [Recovered/Resolved]
  - Vomiting [Recovered/Resolved]
  - Agitation [Recovered/Resolved]
  - Drooling [Recovered/Resolved]
  - Nausea [Recovered/Resolved]
